FAERS Safety Report 7519174-9 (Version None)
Quarter: 2011Q2

REPORT INFORMATION
  Report Type: 
  Country: None (occurrence: None)
  Receive Date: 20110602
  Receipt Date: 20110526
  Transmission Date: 20111010
  Serious: Yes (Other)
  Sender: FDA-Public Use
  Company Number: US-ROCHE-779644

PATIENT
  Sex: Female
  Weight: 22 kg

DRUGS (15)
  1. CELLCEPT [Suspect]
     Route: 065
     Dates: start: 20040225
  2. PROCRIT [Suspect]
     Dosage: ROUTE: SUBCUTANEOUS/INTRAVENOUS
     Route: 050
     Dates: start: 20080101, end: 20110201
  3. ALBUTEROL SULFATE AUTOHALER [Concomitant]
     Indication: ASTHMA
  4. EPOGEN [Suspect]
     Route: 058
     Dates: end: 20110201
  5. CALCIUM ACETATE [Concomitant]
     Indication: BLOOD PRESSURE
     Dosage: FOR POTASSIUM
  6. PERIACTIN [Concomitant]
     Indication: ANTIALLERGIC THERAPY
     Dosage: ANTIHISTAMINE
  7. VALGANCICLOVIR [Suspect]
     Indication: CYTOMEGALOVIRUS INFECTION
     Route: 065
     Dates: start: 20101018, end: 20110222
  8. FERROUS SULFATE TAB [Concomitant]
  9. ATENOLOL [Concomitant]
     Indication: BLOOD PRESSURE
  10. PROCRIT [Suspect]
     Route: 050
     Dates: end: 20110315
  11. PROGRAF [Suspect]
     Route: 065
     Dates: start: 20040225, end: 20071120
  12. EPOGEN [Suspect]
     Indication: NEPHROGENIC ANAEMIA
     Route: 058
     Dates: end: 20101201
  13. EPOGEN [Suspect]
     Route: 058
     Dates: end: 20110301
  14. SYMBICORT [Concomitant]
     Indication: ASTHMA
  15. PULMOZYME [Concomitant]
     Indication: ASTHMA

REACTIONS (4)
  - HYPERPARATHYROIDISM [None]
  - APLASIA PURE RED CELL [None]
  - ANTI-ERYTHROPOIETIN ANTIBODY NEGATIVE [None]
  - CYTOMEGALOVIRUS INFECTION [None]
